FAERS Safety Report 5136228-5 (Version None)
Quarter: 2006Q4

REPORT INFORMATION
  Report Type: 
  Country: None (occurrence: None)
  Receive Date: 20061027
  Receipt Date: 20060907
  Transmission Date: 20070319
  Serious: Yes (Other)
  Sender: FDA-Public Use
  Company Number: JP-GILEAD-2006-0010187

PATIENT
  Age: 65 Year
  Sex: Male

DRUGS (2)
  1. HEPSERA [Suspect]
     Indication: HEPATITIS B
     Route: 048
     Dates: start: 20050501
  2. ZEFIX [Concomitant]

REACTIONS (4)
  - BLOOD CREATININE INCREASED [None]
  - GLOMERULONEPHRITIS PROLIFERATIVE [None]
  - NEPHRITIS [None]
  - RENAL IMPAIRMENT [None]
